FAERS Safety Report 8908809 (Version 6)
Quarter: 2013Q1

REPORT INFORMATION
  Report Type: Report from Study
  Country: DE (occurrence: DE)
  Receive Date: 20121114
  Receipt Date: 20130319
  Transmission Date: 20140127
  Serious: Yes (Hospitalization)
  Sender: FDA-Public Use
  Company Number: PHHY2012DE027494

PATIENT
  Sex: Male
  Weight: 108 kg

DRUGS (24)
  1. AMN107 [Suspect]
     Indication: CHRONIC MYELOID LEUKAEMIA
     Dosage: 800 MG, DAILY
     Route: 048
     Dates: start: 20111018, end: 20120221
  2. AMN107 [Suspect]
     Dosage: 600 MG, DAILY
     Route: 048
     Dates: start: 20120222
  3. CERTICAN [Suspect]
     Indication: IMMUNOSUPPRESSION
     Dosage: 0.75 MG, BID
     Dates: start: 200511, end: 201209
  4. CERTICAN [Suspect]
     Dosage: 0.5 MG, BID
     Dates: end: 201209
  5. MAGNESIUM VERLA [Concomitant]
     Dates: start: 200712
  6. CELLCEPT [Concomitant]
     Dates: start: 200411
  7. ATORVASTATIN [Concomitant]
     Dates: start: 200610
  8. EZETROL [Concomitant]
     Dates: start: 200903
  9. SPIRONOLACTON [Concomitant]
     Dates: start: 201003
  10. PROCORALAN [Concomitant]
     Dates: start: 200610
  11. LASIX [Concomitant]
     Dates: start: 200910
  12. REKAWAN [Concomitant]
     Dates: start: 200604
  13. CALCIUM [Concomitant]
     Dates: start: 200606
  14. JANUVIA [Concomitant]
     Dates: start: 200903
  15. METFORMIN [Concomitant]
     Dates: start: 200903
  16. ZYLORIC [Concomitant]
     Dates: start: 200610
  17. NEURONTIN [Concomitant]
     Dates: start: 200610
  18. TARGIN [Concomitant]
     Dates: start: 201003
  19. ACTIQ [Concomitant]
     Dates: start: 200610
  20. GLUCOPHAGE [Concomitant]
     Dates: start: 201110
  21. ACTRAPID//INSULIN HUMAN [Concomitant]
     Dates: start: 20111208
  22. ASS [Concomitant]
     Dates: start: 201203
  23. DUROGESIC [Concomitant]
     Dates: start: 201208
  24. PROGRAF [Concomitant]
     Dates: start: 201209

REACTIONS (11)
  - Diabetes mellitus [Not Recovered/Not Resolved]
  - Blood glucose increased [Not Recovered/Not Resolved]
  - Diabetic foot [Not Recovered/Not Resolved]
  - Necrosis [Not Recovered/Not Resolved]
  - Peripheral arterial occlusive disease [Recovered/Resolved]
  - Soft tissue inflammation [Recovered/Resolved]
  - Pain in extremity [Recovered/Resolved]
  - Local swelling [Not Recovered/Not Resolved]
  - Joint dislocation [Not Recovered/Not Resolved]
  - Pain [Not Recovered/Not Resolved]
  - Peripheral ischaemia [Not Recovered/Not Resolved]
